FAERS Safety Report 7303735-6 (Version None)
Quarter: 2011Q1

REPORT INFORMATION
  Report Type: 
  Country: None (occurrence: None)
  Receive Date: 20110221
  Receipt Date: 20110210
  Transmission Date: 20110831
  Serious: Yes (Other)
  Sender: FDA-Public Use
  Company Number: US-ROCHE-736012

PATIENT
  Sex: Female
  Weight: 97.1 kg

DRUGS (3)
  1. ACCUTANE [Suspect]
     Route: 065
     Dates: start: 19911001, end: 19920501
  2. ACCUTANE [Suspect]
     Indication: ACNE
     Route: 065
     Dates: start: 19901001
  3. ACCUTANE [Suspect]
     Route: 065
     Dates: end: 19930501

REACTIONS (8)
  - REFLUX OESOPHAGITIS [None]
  - INFLAMMATORY BOWEL DISEASE [None]
  - COLITIS ULCERATIVE [None]
  - CROHN'S DISEASE [None]
  - GASTROINTESTINAL INJURY [None]
  - DIVERTICULUM [None]
  - RECTAL HAEMORRHAGE [None]
  - DEPRESSION [None]
